FAERS Safety Report 19232155 (Version 1)
Quarter: 2021Q2

REPORT INFORMATION
  Report Type: Report from Study
  Country: US (occurrence: US)
  Receive Date: 20210507
  Receipt Date: 20210507
  Transmission Date: 20210717
  Serious: Yes (Hospitalization)
  Sender: FDA-Public Use
  Company Number: US-PFIZER INC-2021471781

PATIENT
  Sex: Female
  Weight: 82.6 kg

DRUGS (6)
  1. CYCLOPHOSPHAMIDE. [Suspect]
     Active Substance: CYCLOPHOSPHAMIDE
     Dosage: 3640 MG (TOTAL DOSE ADMINISTERED THIS COURSE)
     Dates: start: 20210125, end: 20210301
  2. ONCASPAR [Suspect]
     Active Substance: PEGASPARGASE
     Dosage: TOTAL ADMINISTERED THIS COURSE (DOSE): 7200 UNIT
     Dates: start: 20210208, end: 20210315
  3. CYTARABINE. [Suspect]
     Active Substance: CYTARABINE
     Dosage: 2240 MG (TOTAL DOSE ADMINISTERED THIS COURSE)
     Dates: start: 20210125, end: 20210311
  4. METHOTREXATE SODIUM. [Suspect]
     Active Substance: METHOTREXATE SODIUM
     Dosage: 45 MG (TOTAL DOSE ADMINISTERED THIS COURSE)
     Dates: start: 20210127, end: 20210217
  5. VINCRISTINE SULFATE. [Suspect]
     Active Substance: VINCRISTINE SULFATE
     Dosage: 8 MG (TOTAL DOSE ADMINISTERED THIS COURSE)
     Dates: start: 20210208, end: 20210322
  6. MERCAPTOPURINE. [Suspect]
     Active Substance: MERCAPTOPURINE
     Dosage: 1550 MG (TOTAL DOSE ADMINISTERED THIS COURSE)
     Dates: start: 20210301, end: 20210314

REACTIONS (1)
  - Sinus tachycardia [Recovered/Resolved]

NARRATIVE: CASE EVENT DATE: 20210324
